FAERS Safety Report 5447248-5 (Version None)
Quarter: 2007Q3

REPORT INFORMATION
  Report Type: 
  Country: None (occurrence: None)
  Receive Date: 20070905
  Receipt Date: 20070905
  Transmission Date: 20080115
  Serious: No
  Sender: FDA-Public Use
  Company Number: None

PATIENT
  Age: 60 Year
  Sex: Female

DRUGS (1)
  1. DULCOLAX [Suspect]
     Indication: COLONOSCOPY
     Dosage: OTC DOSE X2 PRIOR TO PROCEDURE ORAL
     Route: 048
     Dates: start: 20070812

REACTIONS (4)
  - COLITIS ISCHAEMIC [None]
  - LARGE INTESTINAL ULCER [None]
  - MUSCLE SPASMS [None]
  - RECTAL HAEMORRHAGE [None]
